FAERS Safety Report 21059685 (Version 2)
Quarter: 2022Q3

REPORT INFORMATION
  Report Type: Spontaneous
  Country: JP (occurrence: JP)
  Receive Date: 20220708
  Receipt Date: 20220729
  Transmission Date: 20221027
  Serious: No
  Sender: FDA-Public Use
  Company Number: JP-ELI_LILLY_AND_COMPANY-JP202207001027

PATIENT
  Age: 57 Year
  Sex: Female

DRUGS (3)
  1. VERZENIO [Suspect]
     Active Substance: ABEMACICLIB
     Indication: Breast cancer stage III
     Dosage: 300 MG, DAILY
     Route: 048
  2. FULVESTRANT [Suspect]
     Active Substance: FULVESTRANT
     Indication: Breast cancer stage III
     Route: 065
  3. LETROZOLE [Concomitant]
     Active Substance: LETROZOLE
     Indication: Breast cancer stage III
     Route: 048

REACTIONS (1)
  - Hepatic function abnormal [Recovering/Resolving]
